FAERS Safety Report 25143649 (Version 2)
Quarter: 2025Q4

REPORT INFORMATION
  Report Type: Spontaneous
  Country: CA (occurrence: CA)
  Receive Date: 20250401
  Receipt Date: 20251016
  Transmission Date: 20260118
  Serious: Yes (Death, Life-Threatening, Hospitalization)
  Sender: ACCORD
  Company Number: CA-MLMSERVICE-20250318-PI450029-00232-1

PATIENT
  Age: 71 Year
  Sex: Male

DRUGS (2)
  1. MYCOPHENOLATE MOFETIL [Suspect]
     Active Substance: MYCOPHENOLATE MOFETIL
     Indication: Immunoglobulin G4 related disease
  2. RITUXIMAB [Suspect]
     Active Substance: RITUXIMAB
     Indication: Immunoglobulin G4 related disease

REACTIONS (6)
  - Strongyloidiasis [Fatal]
  - Sepsis [Fatal]
  - Pneumonia aspiration [Fatal]
  - Escherichia bacteraemia [Recovered/Resolved]
  - Enterococcal bacteraemia [Unknown]
  - Off label use [Unknown]
